FAERS Safety Report 14019285 (Version 1)
Quarter: 2017Q3

REPORT INFORMATION
  Report Type: Spontaneous
  Country: US (occurrence: US)
  Receive Date: 20170928
  Receipt Date: 20170928
  Transmission Date: 20171128
  Serious: No
  Sender: FDA-Public Use
  Company Number: US-BION-006146

PATIENT
  Age: 67 Year
  Sex: Female
  Weight: 61.23 kg

DRUGS (1)
  1. IMODIUM A-D [Suspect]
     Active Substance: LOPERAMIDE HYDROCHLORIDE
     Indication: DIARRHOEA
     Dosage: 3 A DAY( AS NEEDED)
     Route: 048

REACTIONS (2)
  - Abdominal discomfort [Recovered/Resolved]
  - Incorrect drug administration duration [Not Recovered/Not Resolved]
